FAERS Safety Report 6818722-1 (Version None)
Quarter: 2010Q3

REPORT INFORMATION
  Report Type: 
  Country: None (occurrence: None)
  Receive Date: 20100706
  Receipt Date: 20100622
  Transmission Date: 20110219
  Serious: Yes (Other)
  Sender: FDA-Public Use
  Company Number: US-ELI_LILLY_AND_COMPANY-US201006006428

PATIENT
  Sex: Male

DRUGS (7)
  1. ZYPREXA [Suspect]
     Indication: SCHIZOAFFECTIVE DISORDER
     Dosage: 30 MG, UNK
  2. ZYPREXA ZYDIS [Suspect]
     Indication: SCHIZOAFFECTIVE DISORDER
     Dosage: 30 MG, UNK
  3. ZYPREXA ZYDIS [Suspect]
     Dosage: 20 MG, UNK
     Dates: end: 20100616
  4. ZYPREXA ZYDIS [Suspect]
     Dosage: 10 MG, UNK
     Dates: start: 20100616
  5. STAVZOR [Concomitant]
  6. RAMIPRIL [Concomitant]
  7. ALTACE [Concomitant]

REACTIONS (10)
  - BURNING SENSATION [None]
  - INFLUENZA LIKE ILLNESS [None]
  - OEDEMA PERIPHERAL [None]
  - OVERDOSE [None]
  - PAIN IN EXTREMITY [None]
  - ROAD TRAFFIC ACCIDENT [None]
  - SKIN DISCOLOURATION [None]
  - SPINAL FRACTURE [None]
  - THOUGHT BLOCKING [None]
  - WEIGHT INCREASED [None]
